FAERS Safety Report 20537795 (Version 2)
Quarter: 2022Q1

REPORT INFORMATION
  Report Type: Report from Study
  Country: US (occurrence: US)
  Receive Date: 20220302
  Receipt Date: 20220323
  Transmission Date: 20220423
  Serious: Yes (Hospitalization)
  Sender: FDA-Public Use
  Company Number: US-GLAXOSMITHKLINE-US2022GSK011503

PATIENT
  Age: 54 Year
  Sex: Female
  Weight: 79.36 kg

DRUGS (8)
  1. NIRAPARIB [Suspect]
     Active Substance: NIRAPARIB
     Indication: Pancreatic carcinoma
     Dosage: 100 MG, QD
     Route: 048
     Dates: start: 20211011, end: 20220116
  2. LOCNARTECAN [Suspect]
     Active Substance: LOCNARTECAN
     Indication: Pancreatic carcinoma
     Dosage: 60 MG/M2, Z (Q2WK)
     Route: 042
     Dates: start: 20211011, end: 20211011
  3. LOCNARTECAN [Suspect]
     Active Substance: LOCNARTECAN
     Dosage: 60 MG/M2, Z (Q2WK)
     Route: 042
     Dates: start: 20220103, end: 20220103
  4. ACETAMINOPHEN [Concomitant]
     Active Substance: ACETAMINOPHEN
     Dosage: UNK
     Dates: start: 20211209
  5. ALBUTEROL SULFATE [Concomitant]
     Active Substance: ALBUTEROL SULFATE
     Dosage: UNK
     Dates: start: 20200325
  6. SYMBICORT [Concomitant]
     Active Substance: BUDESONIDE\FORMOTEROL FUMARATE DIHYDRATE
     Dosage: UNK
     Dates: start: 20200803
  7. ONDANSETRON [Concomitant]
     Active Substance: ONDANSETRON
     Dosage: UNK
     Dates: start: 20211011
  8. PROCHLORPERAZINE [Concomitant]
     Active Substance: PROCHLORPERAZINE
     Dosage: UNK
     Dates: start: 20211011

REACTIONS (1)
  - Cerebrovascular accident [Recovered/Resolved with Sequelae]

NARRATIVE: CASE EVENT DATE: 20220116
